FAERS Safety Report 9833505 (Version 2)
Quarter: 2014Q1

REPORT INFORMATION
  Report Type: Spontaneous
  Country: US (occurrence: US)
  Receive Date: 20140122
  Receipt Date: 20140207
  Transmission Date: 20141002
  Serious: No
  Sender: FDA-Public Use
  Company Number: US-009507513-1401USA008125

PATIENT
  Age: 59 Year
  Sex: Female
  Weight: 93.42 kg

DRUGS (3)
  1. VICTRELIS [Suspect]
     Indication: HEPATITIS C
     Dosage: 800 MG, TID
     Route: 048
     Dates: start: 201312
  2. PEGINTRON [Suspect]
     Indication: HEPATITIS C
     Dosage: 150, QW
     Route: 058
     Dates: start: 20131101
  3. REBETOL [Suspect]
     Indication: HEPATITIS C
     Dosage: 1200 MG DAILY
     Route: 048
     Dates: start: 20131101

REACTIONS (1)
  - Fatigue [Not Recovered/Not Resolved]
